FAERS Safety Report 18652455 (Version 11)
Quarter: 2025Q1

REPORT INFORMATION
  Report Type: Report from Study
  Country: JP (occurrence: JP)
  Receive Date: 20201223
  Receipt Date: 20250218
  Transmission Date: 20250409
  Serious: Yes (Other)
  Sender: ABBVIE
  Company Number: JP-TAKEDA-2020TJP026353

PATIENT
  Age: 60 Year
  Sex: Male
  Weight: 75.8 kg

DRUGS (31)
  1. LEUPROLIDE ACETATE [Suspect]
     Active Substance: LEUPROLIDE ACETATE
     Indication: Bulbospinal muscular atrophy congenital
     Dosage: 11.25 MILLIGRAM
     Route: 058
     Dates: start: 20171030
  2. MAGNESIUM OXIDE [Concomitant]
     Active Substance: MAGNESIUM OXIDE
     Indication: Constipation
     Route: 065
     Dates: start: 20221223, end: 20230303
  3. TULOBUTEROL [Concomitant]
     Active Substance: TULOBUTEROL
     Indication: Bronchitis
     Route: 065
     Dates: start: 20231226, end: 20231231
  4. TULOBUTEROL [Concomitant]
     Active Substance: TULOBUTEROL
     Indication: Bronchitis
     Route: 065
     Dates: start: 20240217, end: 20240221
  5. PRAVASTATIN SODIUM [Concomitant]
     Active Substance: PRAVASTATIN SODIUM
     Indication: Product used for unknown indication
     Route: 065
  6. PRAVASTATIN SODIUM [Concomitant]
     Active Substance: PRAVASTATIN SODIUM
     Indication: Product used for unknown indication
     Route: 065
     Dates: start: 20191114, end: 20210506
  7. SENNOSIDES A AND B [Concomitant]
     Active Substance: SENNOSIDES A AND B
     Indication: Constipation
     Route: 065
     Dates: start: 20221223, end: 20230303
  8. Inavir [Concomitant]
     Indication: Influenza
     Route: 065
     Dates: start: 20180416, end: 20180416
  9. Inavir [Concomitant]
     Indication: Influenza
     Route: 065
     Dates: start: 20231226, end: 20231226
  10. AMLODIPINE [Concomitant]
     Active Substance: AMLODIPINE BESYLATE
     Indication: Product used for unknown indication
     Route: 065
  11. KETOPROFEN [Concomitant]
     Active Substance: KETOPROFEN
     Indication: Arthralgia
     Route: 065
     Dates: start: 20210212, end: 20220212
  12. VARENICLINE TARTRATE [Concomitant]
     Active Substance: VARENICLINE TARTRATE
     Indication: Nicotine dependence
     Route: 065
     Dates: start: 20171017, end: 20171031
  13. VARENICLINE TARTRATE [Concomitant]
     Active Substance: VARENICLINE TARTRATE
     Indication: Nicotine dependence
     Route: 065
     Dates: start: 20171031, end: 20171102
  14. VARENICLINE TARTRATE [Concomitant]
     Active Substance: VARENICLINE TARTRATE
     Indication: Nicotine dependence
     Route: 065
     Dates: start: 20171103, end: 20171106
  15. VARENICLINE TARTRATE [Concomitant]
     Active Substance: VARENICLINE TARTRATE
     Indication: Nicotine dependence
     Route: 065
     Dates: start: 20171107, end: 20180114
  16. UMECLIDINIUM BROMIDE [Concomitant]
     Active Substance: UMECLIDINIUM BROMIDE
     Indication: Chronic obstructive pulmonary disease
     Route: 065
     Dates: start: 20230126, end: 20231002
  17. Ambroxol hydrochloride Towa [Concomitant]
     Indication: Bronchitis
     Route: 065
     Dates: start: 20240319, end: 20240401
  18. TAMIFLU [Concomitant]
     Active Substance: OSELTAMIVIR PHOSPHATE
     Indication: Prophylaxis
     Route: 065
     Dates: start: 20190202, end: 20190211
  19. TAMIFLU [Concomitant]
     Active Substance: OSELTAMIVIR PHOSPHATE
     Indication: Prophylaxis
     Route: 065
     Dates: start: 20200221, end: 20200301
  20. TRANEXAMIC ACIDE [Concomitant]
     Indication: Viral pharyngitis
     Route: 065
     Dates: start: 20191114, end: 20191119
  21. CARBOCYSTEINE [Concomitant]
     Active Substance: CARBOCYSTEINE
     Indication: Viral pharyngitis
     Route: 065
     Dates: start: 20191114, end: 20191119
  22. CARBOCYSTEINE [Concomitant]
     Active Substance: CARBOCYSTEINE
     Indication: Viral pharyngitis
     Route: 065
     Dates: start: 20191223, end: 20191230
  23. XYZAL [Concomitant]
     Active Substance: LEVOCETIRIZINE DIHYDROCHLORIDE
     Indication: Viral pharyngitis
     Route: 065
     Dates: start: 20191114, end: 20191119
  24. XYZAL [Concomitant]
     Active Substance: LEVOCETIRIZINE DIHYDROCHLORIDE
     Indication: Viral pharyngitis
     Route: 065
     Dates: start: 20231226, end: 20231231
  25. XYZAL [Concomitant]
     Active Substance: LEVOCETIRIZINE DIHYDROCHLORIDE
     Indication: Viral pharyngitis
     Route: 065
     Dates: start: 20240217, end: 20240221
  26. JARDIANCE [Concomitant]
     Active Substance: EMPAGLIFLOZIN
     Indication: Product used for unknown indication
     Route: 065
     Dates: start: 20221115
  27. LAGEVRIO [Concomitant]
     Active Substance: MOLNUPIRAVIR
     Indication: COVID-19
     Route: 065
     Dates: start: 20240217, end: 20240221
  28. GLUTAMINE\SODIUM GUALENATE [Concomitant]
     Active Substance: GLUTAMINE\SODIUM GUALENATE
     Indication: Gastritis
     Route: 065
     Dates: start: 20231127, end: 20231218
  29. AMLODIPINE BESYLATE [Concomitant]
     Active Substance: AMLODIPINE BESYLATE
     Indication: Product used for unknown indication
     Route: 065
  30. CARBOCISTEINE CO [Concomitant]
     Indication: Influenza
     Route: 065
     Dates: start: 20240217, end: 20240221
  31. CARBOCISTEINE CO [Concomitant]
     Indication: Influenza
     Route: 065
     Dates: start: 20231226, end: 20231231

REACTIONS (12)
  - Diabetes mellitus [Not Recovered/Not Resolved]
  - Diabetes mellitus [Recovering/Resolving]
  - Rash [Recovering/Resolving]
  - Lipid metabolism disorder [Recovering/Resolving]
  - Injection site induration [Recovered/Resolved]
  - Injection site erythema [Recovered/Resolved]
  - Injection site erosion [Recovered/Resolved]
  - Injection site induration [Recovered/Resolved]
  - Injection site ulcer [Recovered/Resolved]
  - Injection site reaction [Recovered/Resolved]
  - Injection site reaction [Recovered/Resolved]
  - Rehabilitation therapy [Unknown]

NARRATIVE: CASE EVENT DATE: 20180122
